FAERS Safety Report 20621743 (Version 3)
Quarter: 2023Q1

REPORT INFORMATION
  Report Type: Spontaneous
  Country: US (occurrence: US)
  Receive Date: 20220322
  Receipt Date: 20230113
  Transmission Date: 20230418
  Serious: No
  Sender: FDA-Public Use
  Company Number: US-NOVOPROD-882915

PATIENT
  Age: 62 Year
  Sex: Male

DRUGS (1)
  1. WEGOVY [Suspect]
     Active Substance: SEMAGLUTIDE
     Indication: Weight control
     Dosage: 0.25 MG INCREASING EVERY MONTH
     Route: 058

REACTIONS (3)
  - Body temperature decreased [Unknown]
  - Sunburn [Recovered/Resolved]
  - Nausea [Unknown]
